FAERS Safety Report 18595845 (Version 1)
Quarter: 2020Q4

REPORT INFORMATION
  Report Type: Spontaneous
  Country: US (occurrence: US)
  Receive Date: 20201209
  Receipt Date: 20201209
  Transmission Date: 20210114
  Serious: Yes (Hospitalization)
  Sender: FDA-Public Use
  Company Number: None

PATIENT
  Age: 78 Year
  Sex: Female

DRUGS (1)
  1. CAPECITABINE TAB 500 MG [Suspect]
     Active Substance: CAPECITABINE
     Indication: RECTAL CANCER
     Route: 048
     Dates: start: 202010, end: 202011

REACTIONS (4)
  - White blood cell count decreased [None]
  - Urinary tract infection [None]
  - Anaemia [None]
  - Anal abscess [None]

NARRATIVE: CASE EVENT DATE: 20201124
